FAERS Safety Report 17618268 (Version 2)
Quarter: 2021Q1

REPORT INFORMATION
  Report Type: Spontaneous
  Country: US (occurrence: US)
  Receive Date: 20200402
  Receipt Date: 20210330
  Transmission Date: 20210419
  Serious: No
  Sender: FDA-Public Use
  Company Number: US-ROCHE-2510028

PATIENT
  Sex: Female

DRUGS (3)
  1. ERIVEDGE [Suspect]
     Active Substance: VISMODEGIB
     Indication: BASAL CELL CARCINOMA
     Dosage: DAILY; ONGOING: YES
     Route: 048
     Dates: start: 20191217
  2. ERIVEDGE [Suspect]
     Active Substance: VISMODEGIB
     Dosage: ONGOING: YES
     Route: 048
     Dates: start: 201912
  3. GUAIFENESIN. [Concomitant]
     Active Substance: GUAIFENESIN

REACTIONS (5)
  - Bronchitis [Unknown]
  - Aphthous ulcer [Unknown]
  - Paraesthesia oral [Unknown]
  - Dysgeusia [Unknown]
  - Ageusia [Unknown]
